FAERS Safety Report 17880904 (Version 1)
Quarter: 2020Q2

REPORT INFORMATION
  Report Type: Report from Study
  Country: CA (occurrence: CA)
  Receive Date: 20200610
  Receipt Date: 20200610
  Transmission Date: 20200714
  Serious: Yes (Other)
  Sender: FDA-Public Use
  Company Number: CA-PFIZER INC-2020221591

PATIENT
  Sex: Male

DRUGS (4)
  1. METHOTREXATE SODIUM. [Suspect]
     Active Substance: METHOTREXATE SODIUM
     Route: 065
  2. HUMIRA [Concomitant]
     Active Substance: ADALIMUMAB
     Route: 065
  3. ETANERCEPT [Suspect]
     Active Substance: ETANERCEPT
     Indication: ANKYLOSING SPONDYLITIS
     Route: 058
  4. LEFLUNOMIDE. [Suspect]
     Active Substance: LEFLUNOMIDE
     Dosage: UNK UNK, WEEKLY
     Route: 048

REACTIONS (17)
  - Joint effusion [Unknown]
  - Rheumatoid arthritis [Unknown]
  - Spinal osteoarthritis [Unknown]
  - Muscle oedema [Unknown]
  - Osteolysis [Unknown]
  - Bone erosion [Unknown]
  - Arthropathy [Unknown]
  - C-reactive protein increased [Unknown]
  - Cartilage injury [Unknown]
  - Exostosis [Unknown]
  - Intervertebral disc degeneration [Unknown]
  - Intervertebral disc space narrowing [Unknown]
  - Bone marrow oedema [Unknown]
  - Soft tissue inflammation [Unknown]
  - Tendon disorder [Unknown]
  - Inflammation [Unknown]
  - Treatment failure [Unknown]
